FAERS Safety Report 7141151-0 (Version None)
Quarter: 2010Q4

REPORT INFORMATION
  Report Type: 
  Country: None (occurrence: None)
  Receive Date: 20101122
  Receipt Date: 20101105
  Transmission Date: 20110411
  Serious: Yes (Other)
  Sender: FDA-Public Use
  Company Number: AUR-APL-2010-02769

PATIENT
  Age: 49 Year
  Sex: Male

DRUGS (1)
  1. TOPIRAMATE [Suspect]
     Indication: ALCOHOL DETOXIFICATION

REACTIONS (10)
  - CHOROIDAL DETACHMENT [None]
  - CHOROIDAL EFFUSION [None]
  - CORNEAL DEPOSITS [None]
  - CORNEAL OEDEMA [None]
  - CORNEAL OPACITY [None]
  - ERYTHEMA [None]
  - FLAT ANTERIOR CHAMBER OF EYE [None]
  - HEADACHE [None]
  - INTRAOCULAR PRESSURE INCREASED [None]
  - LACRIMATION INCREASED [None]
